FAERS Safety Report 18039901 (Version 1)
Quarter: 2020Q3

REPORT INFORMATION
  Report Type: Spontaneous
  Country: IT (occurrence: IT)
  Receive Date: 20200717
  Receipt Date: 20200717
  Transmission Date: 20201103
  Serious: Yes (Other)
  Sender: FDA-Public Use
  Company Number: NVSC2020IT198261

PATIENT
  Age: 69 Year
  Sex: Male

DRUGS (1)
  1. AMOXICILLIN SODIUM [Suspect]
     Active Substance: AMOXICILLIN SODIUM
     Indication: EAR INFECTION
     Dosage: 1 DF
     Route: 048
     Dates: start: 20200622, end: 20200622

REACTIONS (6)
  - Asthenia [Recovered/Resolved]
  - Anaphylactic shock [Recovered/Resolved]
  - Vomiting [Recovered/Resolved]
  - Pruritus [Recovered/Resolved]
  - Dyspnoea [Recovered/Resolved]
  - Erythema [Recovered/Resolved]

NARRATIVE: CASE EVENT DATE: 20200622
